FAERS Safety Report 7427053-0 (Version None)
Quarter: 2011Q2

REPORT INFORMATION
  Report Type: 
  Country: None (occurrence: None)
  Receive Date: 20110420
  Receipt Date: 20110408
  Transmission Date: 20111010
  Serious: Yes (Hospitalization)
  Sender: FDA-Public Use
  Company Number: PHHY2011SE31599

PATIENT
  Age: 87 Year
  Sex: Female

DRUGS (8)
  1. ATENOLOL [Suspect]
     Indication: HYPERTONIA
     Dosage: UNK
     Route: 048
     Dates: end: 20110201
  2. SIMVASTATIN [Concomitant]
  3. SALURES [Concomitant]
  4. FELODIPINE [Concomitant]
  5. HYDERGINE [Suspect]
     Dosage: UNK
     Route: 048
     Dates: end: 20110201
  6. SPIRONOLAKTON [Concomitant]
  7. MINDIAB [Concomitant]
  8. TROMBYL [Concomitant]
     Dosage: UNK

REACTIONS (3)
  - VOMITING [None]
  - DIARRHOEA [None]
  - BRADYCARDIA [None]
